FAERS Safety Report 9664497 (Version 2)
Quarter: 2013Q4

REPORT INFORMATION
  Report Type: Spontaneous
  Country: US (occurrence: US)
  Receive Date: 20131101
  Receipt Date: 20131104
  Transmission Date: 20140711
  Serious: Yes (Hospitalization)
  Sender: FDA-Public Use
  Company Number: US-BAXTER-2013BAX042167

PATIENT
  Age: 69 Year
  Sex: Male

DRUGS (6)
  1. DIANEAL LOW CALCIUM [Suspect]
     Indication: RENAL FAILURE CHRONIC
     Route: 033
     Dates: start: 20130607
  2. DIANEAL LOW CALCIUM [Suspect]
     Route: 033
     Dates: start: 20130607
  3. DIANEAL LOW CALCIUM [Suspect]
     Route: 033
     Dates: start: 20130607
  4. DIANEAL LOW CALCIUM [Suspect]
     Indication: RENAL FAILURE CHRONIC
     Route: 033
     Dates: start: 20130607
  5. DIANEAL LOW CALCIUM [Suspect]
     Route: 033
     Dates: start: 20130607
  6. DIANEAL LOW CALCIUM [Suspect]
     Route: 033
     Dates: start: 20130607

REACTIONS (1)
  - Chest discomfort [Recovered/Resolved]
